FAERS Safety Report 4592022-5 (Version None)
Quarter: 2005Q1

REPORT INFORMATION
  Report Type: 
  Country: None (occurrence: None)
  Receive Date: 20050125
  Receipt Date: 20040914
  Transmission Date: 20050727
  Serious: No
  Sender: FDA-Public Use
  Company Number: USA040773360

PATIENT
  Age: 78 Year
  Sex: Female
  Weight: 45 kg

DRUGS (6)
  1. FORTEO [Suspect]
     Indication: OSTEOPOROSIS
     Dosage: 20 UG DAY
     Dates: start: 20040301
  2. EFFEXOR XR [Concomitant]
  3. CITRACAL + D [Concomitant]
  4. PAXIL [Concomitant]
  5. GLAUCOMA EYE DROPS [Concomitant]
  6. VITAMINS NOS [Concomitant]

REACTIONS (8)
  - ABNORMAL DREAMS [None]
  - BLOOD CALCIUM INCREASED [None]
  - DISTURBANCE IN ATTENTION [None]
  - DIZZINESS [None]
  - FATIGUE [None]
  - NIGHT SWEATS [None]
  - PAIN [None]
  - SOMNOLENCE [None]
